FAERS Safety Report 23029485 (Version 1)
Quarter: 2023Q4

REPORT INFORMATION
  Report Type: Spontaneous
  Country: CN (occurrence: CN)
  Receive Date: 20231004
  Receipt Date: 20231004
  Transmission Date: 20240109
  Serious: Yes (Hospitalization, Other)
  Sender: FDA-Public Use
  Company Number: CN-PFIZER INC-PV202300162448

PATIENT
  Age: 59 Year
  Weight: 90 kg

DRUGS (6)
  1. METHOTREXATE SODIUM [Suspect]
     Active Substance: METHOTREXATE SODIUM
     Indication: Neoplasm
     Dosage: 7 G, 1X/DAY
     Route: 041
     Dates: start: 20230528, end: 20230528
  2. METHOTREXATE SODIUM [Suspect]
     Active Substance: METHOTREXATE SODIUM
     Indication: Chemotherapy
  3. RITUXIMAB [Concomitant]
     Active Substance: RITUXIMAB
     Indication: Neoplasm
     Dosage: 300 MG, 1X/DAY
     Route: 041
     Dates: start: 20230527, end: 20230527
  4. RITUXIMAB [Concomitant]
     Active Substance: RITUXIMAB
     Indication: Chemotherapy
  5. CYTARABINE [Concomitant]
     Active Substance: CYTARABINE
     Indication: Neoplasm
     Dosage: 4 G, 1X/DAY
     Route: 041
     Dates: start: 20230529, end: 20230529
  6. CYTARABINE [Concomitant]
     Active Substance: CYTARABINE
     Indication: Chemotherapy

REACTIONS (2)
  - Acute kidney injury [Recovering/Resolving]
  - Hepatitis B virus test positive [Unknown]

NARRATIVE: CASE EVENT DATE: 20230529
